FAERS Safety Report 7282347-7 (Version None)
Quarter: 2011Q1

REPORT INFORMATION
  Report Type: 
  Country: None (occurrence: None)
  Receive Date: 20110209
  Receipt Date: 20110201
  Transmission Date: 20110831
  Serious: Yes (Hospitalization)
  Sender: FDA-Public Use
  Company Number: US-ELI_LILLY_AND_COMPANY-US201102000620

PATIENT
  Sex: Male

DRUGS (2)
  1. HUMALOG [Suspect]
     Dosage: 5 U, OTHER
     Dates: start: 20110201, end: 20110201
  2. HUMALOG [Suspect]
     Dosage: 10 U, OTHER

REACTIONS (4)
  - BLOOD GLUCOSE INCREASED [None]
  - THROMBOSIS [None]
  - UNDERDOSE [None]
  - FOOT FRACTURE [None]
